FAERS Safety Report 20569599 (Version 3)
Quarter: 2022Q2

REPORT INFORMATION
  Report Type: Spontaneous
  Country: US (occurrence: US)
  Receive Date: 20220309
  Receipt Date: 20220427
  Transmission Date: 20220721
  Serious: Yes (Hospitalization)
  Sender: FDA-Public Use
  Company Number: US-BRISTOL-MYERS SQUIBB COMPANY-BMS-2022-032643

PATIENT
  Age: 78 Year
  Sex: Female

DRUGS (1)
  1. ORENCIA [Suspect]
     Active Substance: ABATACEPT
     Indication: Product used for unknown indication
     Dosage: STRENGTH: 125MG, 1 WEEKLY
     Route: 058

REACTIONS (2)
  - COVID-19 [Unknown]
  - Joint swelling [Unknown]

NARRATIVE: CASE EVENT DATE: 20220128
